FAERS Safety Report 10398761 (Version 1)
Quarter: 2014Q3

REPORT INFORMATION
  Report Type: Spontaneous
  Country: US (occurrence: None)
  Receive Date: 20140818
  Receipt Date: 20140818
  Transmission Date: 20150326
  Serious: Yes (Hospitalization, Other)
  Sender: FDA-Public Use
  Company Number: None

PATIENT
  Age: 59 Year
  Sex: Female
  Weight: 70.31 kg

DRUGS (4)
  1. ATORVASTATIN CALCIUM. [Suspect]
     Active Substance: ATORVASTATIN CALCIUM
     Indication: BLOOD CHOLESTEROL INCREASED
     Dosage: 40 MG, 1 TABLET, 1 TIME DAILY BY MOUTH
     Route: 048
     Dates: start: 20140727, end: 20140806
  2. ASPIRIN. [Concomitant]
     Active Substance: ASPIRIN
  3. FISH OIL AND CALCIUM [Concomitant]
  4. OMEPRAZOLE. [Concomitant]
     Active Substance: OMEPRAZOLE

REACTIONS (3)
  - Amnesia [None]
  - Cognitive disorder [None]
  - Delusion [None]

NARRATIVE: CASE EVENT DATE: 20140218
